FAERS Safety Report 21853959 (Version 1)
Quarter: 2023Q1

REPORT INFORMATION
  Report Type: Spontaneous
  Country: US (occurrence: None)
  Receive Date: 20230111
  Receipt Date: 20230111
  Transmission Date: 20230418
  Serious: Yes (Other)
  Sender: FDA-Public Use
  Company Number: None

PATIENT
  Age: 28 Year
  Sex: Female

DRUGS (3)
  1. CAPLYTA [Suspect]
     Active Substance: LUMATEPERONE
     Indication: Bipolar disorder
     Dosage: FREQUENCY : DAILY;?
     Route: 048
     Dates: start: 20220601
  2. GABAPENTIN [Concomitant]
     Active Substance: GABAPENTIN
     Dates: start: 20220301
  3. Deplin (algal oil) [Concomitant]
     Dates: start: 20220602

REACTIONS (3)
  - Menstruation irregular [None]
  - Hypomenorrhoea [None]
  - Dysmenorrhoea [None]

NARRATIVE: CASE EVENT DATE: 20220701
